FAERS Safety Report 9059339 (Version 1)
Quarter: 2013Q1

REPORT INFORMATION
  Report Type: Spontaneous
  Country: US (occurrence: US)
  Receive Date: 20130211
  Receipt Date: 20130211
  Transmission Date: 20140127
  Serious: Yes (Death)
  Sender: FDA-Public Use
  Company Number: US-ASTRAZENECA-2013SE09044

PATIENT
  Age: 225 Day
  Sex: Female

DRUGS (1)
  1. SYNAGIS [Suspect]
     Dosage: 50MG/0.5ML/ 15MG/KG ONCE MONTHLY
     Route: 030
     Dates: start: 201301, end: 201302

REACTIONS (1)
  - Death [Fatal]
